FAERS Safety Report 18249588 (Version 1)
Quarter: 2020Q3

REPORT INFORMATION
  Report Type: Spontaneous
  Country: DE (occurrence: DE)
  Receive Date: 20200909
  Receipt Date: 20200909
  Transmission Date: 20201103
  Serious: Yes (Death, Congenital Anomaly, Other)
  Sender: FDA-Public Use
  Company Number: DE-UCBSA-2020034462

PATIENT
  Sex: Female

DRUGS (1)
  1. BRIVIACT [Suspect]
     Active Substance: BRIVARACETAM
     Indication: EPILEPSY
     Dosage: 100 [MG/D ] 2 SEPARATED DOSES
     Route: 064
     Dates: start: 201902, end: 20190527

REACTIONS (7)
  - Hydrocephalus [Fatal]
  - Cerebellar hypoplasia [Fatal]
  - Macrocephaly [Fatal]
  - Low birth weight baby [Unknown]
  - Maternal exposure before pregnancy [Unknown]
  - Dysmorphism [Fatal]
  - Meningocele [Fatal]

NARRATIVE: CASE EVENT DATE: 2019
